FAERS Safety Report 22111016 (Version 5)
Quarter: 2024Q4

REPORT INFORMATION
  Report Type: Spontaneous
  Country: US (occurrence: US)
  Receive Date: 20230317
  Receipt Date: 20241108
  Transmission Date: 20250115
  Serious: Yes (Hospitalization, Other)
  Sender: TEVA
  Company Number: US-TEVA-2023-US-2867567

PATIENT
  Age: 80 Year
  Sex: Male

DRUGS (12)
  1. AZITHROMYCIN [Suspect]
     Active Substance: AZITHROMYCIN
     Indication: Babesiosis
     Route: 065
  2. AZITHROMYCIN [Suspect]
     Active Substance: AZITHROMYCIN
     Indication: Babesiosis
     Route: 065
  3. HUMAN IMMUNOGLOBULIN G [Suspect]
     Active Substance: HUMAN IMMUNOGLOBULIN G
     Indication: Cold type haemolytic anaemia
     Route: 042
  4. RITUXIMAB [Suspect]
     Active Substance: RITUXIMAB
     Indication: Monoclonal B-cell lymphocytosis
     Route: 065
  5. BENDAMUSTINE [Suspect]
     Active Substance: BENDAMUSTINE
     Indication: Monoclonal B-cell lymphocytosis
     Route: 065
  6. ATOVAQUONE [Suspect]
     Active Substance: ATOVAQUONE
     Indication: Babesiosis
     Route: 065
  7. ATOVAQUONE [Suspect]
     Active Substance: ATOVAQUONE
     Indication: Babesiosis
     Route: 065
  8. CLINDAMYCIN [Suspect]
     Active Substance: CLINDAMYCIN
     Indication: Babesiosis
     Dosage: TIME INTERVAL: 0.333 DAYS: DOSAGE TEXT: THRICE DAILY
     Route: 065
  9. CLINDAMYCIN [Suspect]
     Active Substance: CLINDAMYCIN
     Indication: Babesiosis
     Dosage: TIME INTERVAL: 0.333 DAYS: DOSAGE TEXT: THRICE DAILY
     Route: 065
  10. QUININE [Suspect]
     Active Substance: QUININE
     Indication: Babesiosis
     Dosage: TIME INTERVAL: 0.333 DAYS: DOSAGE TEXT: THRICE DAILY
     Route: 065
  11. ATOVAQUONE\PROGUANIL [Suspect]
     Active Substance: ATOVAQUONE\PROGUANIL
     Indication: Babesiosis
     Dosage: DOSAGE TEXT: ATOVAQUONE/PROGUANIL 1000/400 MG DAILY
     Route: 065
  12. ATOVAQUONE\PROGUANIL [Suspect]
     Active Substance: ATOVAQUONE\PROGUANIL
     Indication: Babesiosis
     Dosage: DOSAGE TEXT: ATOVAQUONE/PROGUANIL 500/200 MG DAILY
     Route: 065

REACTIONS (5)
  - Babesiosis [Recovered/Resolved]
  - Abdominal discomfort [Recovered/Resolved]
  - Nausea [Recovered/Resolved]
  - Drug resistance [Unknown]
  - Drug ineffective [Unknown]

NARRATIVE: CASE EVENT DATE: 20210520
